FAERS Safety Report 4754474-7 (Version None)
Quarter: 2005Q3

REPORT INFORMATION
  Report Type: 
  Country: None (occurrence: None)
  Receive Date: 20050829
  Receipt Date: 20050304
  Transmission Date: 20060218
  Serious: Yes (Other)
  Sender: FDA-Public Use
  Company Number: PHEH2005US02741

PATIENT
  Age: 81 Year
  Sex: Male

DRUGS (3)
  1. ZOMETA [Suspect]
     Indication: MULTIPLE MYELOMA
     Dosage: 4 MG EVERY 4 WEEKS
     Route: 042
     Dates: start: 20040126, end: 20040930
  2. PREDNISONE TAB [Concomitant]
     Dosage: 100 MG DAILY FOR 4 DAYS
     Route: 048
     Dates: start: 20040109
  3. MELPHALAN [Concomitant]
     Dosage: UNSPECIFIED
     Dates: start: 20040109

REACTIONS (17)
  - BONE DEBRIDEMENT [None]
  - BONE DISORDER [None]
  - BONE FISTULA [None]
  - BONE LESION [None]
  - DISCOMFORT [None]
  - FALL [None]
  - INFLAMMATION [None]
  - INJURY [None]
  - JAW DISORDER [None]
  - ORAL INFECTION [None]
  - OSTEONECROSIS [None]
  - PAIN IN JAW [None]
  - PRIMARY SEQUESTRUM [None]
  - SENSATION OF PRESSURE [None]
  - TOOTH ABSCESS [None]
  - TOOTH DISORDER [None]
  - TOOTH EXTRACTION [None]
